APPROVED DRUG PRODUCT: ZADITOR
Active Ingredient: KETOTIFEN FUMARATE
Strength: EQ 0.025% BASE **Federal Register determination that product was not discontinued or withdrawn for safety or effectiveness reasons**
Dosage Form/Route: SOLUTION/DROPS;OPHTHALMIC
Application: N021066 | Product #002
Applicant: ALCON RESEARCH LTD
Approved: Oct 19, 2006 | RLD: Yes | RS: No | Type: DISCN